FAERS Safety Report 9753147 (Version 1)
Quarter: 2013Q4

REPORT INFORMATION
  Report Type: Spontaneous
  Country: US (occurrence: US)
  Receive Date: 20131213
  Receipt Date: 20131213
  Transmission Date: 20140711
  Serious: Yes (Hospitalization)
  Sender: FDA-Public Use
  Company Number: US-GILEAD-2010-0026504

PATIENT
  Age: 72 Year
  Sex: Male

DRUGS (15)
  1. LETAIRIS [Suspect]
     Indication: PULMONARY ARTERIAL HYPERTENSION
     Route: 048
     Dates: start: 20091208, end: 20091214
  2. FUROSEMIDE [Concomitant]
  3. METOLAZONE [Concomitant]
  4. ATENOLOL [Concomitant]
  5. HYDRALAZINE [Concomitant]
  6. CELEBREX [Concomitant]
  7. TEMAZEPAM [Concomitant]
  8. POTASSIUM CHLORIDE [Concomitant]
  9. LEVEMIR [Concomitant]
  10. COLCHICINE [Concomitant]
  11. ASPIRIN [Concomitant]
  12. JANUVIA [Concomitant]
  13. LIPITOR [Concomitant]
  14. GLIPIZIDE [Concomitant]
  15. MINOXIDIL [Concomitant]

REACTIONS (2)
  - Oedema [Recovered/Resolved]
  - Dyspnoea [Recovered/Resolved]
